FAERS Safety Report 14604302 (Version 1)
Quarter: 2018Q1

REPORT INFORMATION
  Report Type: Spontaneous
  Country: GB (occurrence: GB)
  Receive Date: 20180306
  Receipt Date: 20180306
  Transmission Date: 20180509
  Serious: Yes (Other)
  Sender: FDA-Public Use
  Company Number: GB-PERRIGO-18GB002375

PATIENT
  Age: 62 Year
  Sex: Male
  Weight: 67.12 kg

DRUGS (1)
  1. PARACETAMOL PLUS CAPSULES 12063/0008 [Suspect]
     Active Substance: ACETAMINOPHEN\CAFFEINE
     Indication: INFLUENZA LIKE ILLNESS
     Dosage: 2 DF, QD
     Route: 048
     Dates: start: 20171223, end: 20171225

REACTIONS (2)
  - Insomnia [Unknown]
  - Drug ineffective [Unknown]

NARRATIVE: CASE EVENT DATE: 20171224
